FAERS Safety Report 15540059 (Version 4)
Quarter: 2018Q4

REPORT INFORMATION
  Report Type: Report from Study
  Country: CA (occurrence: CA)
  Receive Date: 20181023
  Receipt Date: 20181212
  Transmission Date: 20190205
  Serious: Yes (Hospitalization)
  Sender: FDA-Public Use
  Company Number: CA-HORIZON-PRO-0181-2018

PATIENT
  Age: 3 Year
  Sex: Male

DRUGS (11)
  1. PHOSLAX [Concomitant]
  2. PREVACID [Concomitant]
     Active Substance: LANSOPRAZOLE
  3. PREDNISONE. [Concomitant]
     Active Substance: PREDNISONE
  4. PROCYSBI [Suspect]
     Active Substance: CYSTEAMINE BITARTRATE
     Indication: CYSTINOSIS
     Dosage: 325 MG BID (TARGET)
     Dates: start: 20180310, end: 20181030
  5. ROCALTROL [Concomitant]
     Active Substance: CALCITRIOL
  6. POTASSIUM CHLORIDE. [Concomitant]
     Active Substance: POTASSIUM CHLORIDE
  7. K-CITRA [Concomitant]
  8. VITAMIN D [Concomitant]
     Active Substance: CHOLECALCIFEROL
  9. CARNITOR [Concomitant]
     Active Substance: LEVOCARNITINE
  10. INDOMETHACINE [Concomitant]
     Active Substance: INDOMETHACIN
  11. PEDIASURE [Concomitant]
     Active Substance: VITAMINS

REACTIONS (9)
  - Abnormal behaviour [Unknown]
  - Irritability [Not Recovered/Not Resolved]
  - Mood altered [Unknown]
  - Aggression [Recovered/Resolved]
  - Nasopharyngitis [Unknown]
  - Crying [Unknown]
  - Head banging [Unknown]
  - Migraine [Unknown]
  - Autism spectrum disorder [Not Recovered/Not Resolved]

NARRATIVE: CASE EVENT DATE: 2018
